FAERS Safety Report 9807689 (Version 1)
Quarter: 2014Q1

REPORT INFORMATION
  Report Type: Spontaneous
  Country: IT (occurrence: IT)
  Receive Date: 20140110
  Receipt Date: 20140110
  Transmission Date: 20141002
  Serious: Yes (Hospitalization)
  Sender: FDA-Public Use
  Company Number: IT-SA-2014SA001340

PATIENT
  Age: 60 Year
  Sex: Male

DRUGS (3)
  1. JEVTANA [Suspect]
     Indication: PROSTATE CANCER METASTATIC
     Route: 048
     Dates: start: 20130911, end: 20131204
  2. DELTACORTENE [Concomitant]
     Route: 048
  3. ZOLEDRONIC ACID [Concomitant]
     Route: 042

REACTIONS (1)
  - Jaundice cholestatic [Recovering/Resolving]
